FAERS Safety Report 5396642-X (Version None)
Quarter: 2007Q3

REPORT INFORMATION
  Report Type: 
  Country: None (occurrence: None)
  Receive Date: 20070725
  Receipt Date: 20070720
  Transmission Date: 20080115
  Serious: Yes (Hospitalization)
  Sender: FDA-Public Use
  Company Number: A0665883A

PATIENT
  Age: 51 Year
  Sex: Male
  Weight: 66 kg

DRUGS (2)
  1. FLIXONASE [Suspect]
     Dosage: 3SPR PER DAY
     Route: 065
     Dates: start: 20070707, end: 20070709
  2. PRELONE [Concomitant]
     Dates: start: 20070707, end: 20070709

REACTIONS (2)
  - ATRIAL FIBRILLATION [None]
  - OVERDOSE [None]
